FAERS Safety Report 15944753 (Version 2)
Quarter: 2020Q3

REPORT INFORMATION
  Report Type: Report from Study
  Country: US (occurrence: US)
  Receive Date: 20190211
  Receipt Date: 20200717
  Transmission Date: 20201102
  Serious: Yes (Hospitalization, Other)
  Sender: FDA-Public Use
  Company Number: US-ROCHE-2257208

PATIENT
  Age: 45 Year
  Sex: Female
  Weight: 48.5 kg

DRUGS (2)
  1. COBIMETINIB. [Suspect]
     Active Substance: COBIMETINIB
     Indication: CRANIOPHARYNGIOMA
     Dosage: ON 18/SEP/2018, LAST DOSE WAS ADMINISTERED?COBIMETINIB 60 MG QD 21 DAYS ON, 7 DAYS OFF
     Route: 048
     Dates: start: 20180910, end: 20180918
  2. VEMURAFENIB. [Suspect]
     Active Substance: VEMURAFENIB
     Indication: CRANIOPHARYNGIOMA
     Dosage: ON 18/SEP/2018, LAST DOSE WAS ADMINISTERED?CYCLE 1. VEMURAFENIB 960 MG BID 28 DAYS
     Route: 065
     Dates: start: 20180910, end: 20180918

REACTIONS (2)
  - Acute kidney injury [Unknown]
  - Anaphylactic reaction [Recovered/Resolved with Sequelae]

NARRATIVE: CASE EVENT DATE: 20180919
